FAERS Safety Report 5656061-5 (Version None)
Quarter: 2008Q1

REPORT INFORMATION
  Report Type: 
  Country: None (occurrence: None)
  Receive Date: 20080307
  Receipt Date: 20080228
  Transmission Date: 20080703
  Serious: Yes (Other)
  Sender: FDA-Public Use
  Company Number: HK-PFIZER INC-2008019957

PATIENT
  Sex: Female

DRUGS (3)
  1. LYRICA [Suspect]
     Indication: GENERALISED ANXIETY DISORDER
     Route: 048
  2. LIPITOR [Suspect]
     Indication: BLOOD CHOLESTEROL
     Route: 048
  3. PAROXETINE HCL [Concomitant]
     Indication: DEPRESSION
     Route: 048

REACTIONS (1)
  - SWOLLEN TONGUE [None]
